FAERS Safety Report 4417207-X (Version None)
Quarter: 2004Q3

REPORT INFORMATION
  Report Type: 
  Country: None (occurrence: None)
  Receive Date: 20040802
  Receipt Date: 20040723
  Transmission Date: 20050211
  Serious: Yes (Death)
  Sender: FDA-Public Use
  Company Number: 2002-07-1973

PATIENT
  Age: 28 Year
  Sex: Male

DRUGS (9)
  1. ALBUTEROL [Suspect]
     Indication: ASTHMA
     Dosage: INHALATION
     Route: 055
     Dates: start: 19980112
  2. AZMACORT INHALATION FOR ASTHMA [Concomitant]
  3. SINGULAIR [Concomitant]
  4. BENZONATATE [Concomitant]
  5. PREDNISONE [Concomitant]
  6. AEROBID INHALATION [Concomitant]
  7. ZITHROMAX [Concomitant]
  8. STEROIDS [Concomitant]
  9. FLOVENT [Concomitant]

REACTIONS (5)
  - ASTHMA [None]
  - CARDIOMEGALY [None]
  - LARYNGEAL OEDEMA [None]
  - MOUTH INJURY [None]
  - PULMONARY CONGESTION [None]
